FAERS Safety Report 8311984-3 (Version None)
Quarter: 2012Q1

REPORT INFORMATION
  Report Type: 
  Country: None (occurrence: None)
  Receive Date: 20120315
  Receipt Date: 20110406
  Transmission Date: 20120608
  Serious: Yes (Hospitalization)
  Sender: FDA-Public Use
  Company Number: PHHY2011US28898

PATIENT
  Age: 44 Year
  Sex: Female
  Weight: 52.3 kg

DRUGS (1)
  1. GILENYA [Suspect]
     Indication: MULTIPLE SCLEROSIS
     Dosage: UNK, ORAL
     Route: 048
     Dates: start: 20110325

REACTIONS (3)
  - DIZZINESS [None]
  - BRADYCARDIA [None]
  - SLUGGISHNESS [None]
